FAERS Safety Report 16935937 (Version 3)
Quarter: 2019Q4

REPORT INFORMATION
  Report Type: Report from Study
  Country: CA (occurrence: CA)
  Receive Date: 20191018
  Receipt Date: 20191127
  Transmission Date: 20200122
  Serious: No
  Sender: FDA-Public Use
  Company Number: CA-BEH-2019108254

PATIENT
  Age: 8 Year
  Sex: Male

DRUGS (5)
  1. HIZENTRA [Suspect]
     Active Substance: HUMAN IMMUNOGLOBULIN G
     Indication: LEUKAEMIA
     Dosage: UNK
     Route: 058
  2. PREVACID [Concomitant]
     Active Substance: LANSOPRAZOLE
     Route: 065
  3. HIZENTRA [Suspect]
     Active Substance: HUMAN IMMUNOGLOBULIN G
     Indication: TRISOMY 21
     Dosage: UNK
     Route: 058
  4. HIZENTRA [Suspect]
     Active Substance: HUMAN IMMUNOGLOBULIN G
     Indication: SECONDARY IMMUNODEFICIENCY
     Dosage: 3 GRAM, QW
     Route: 058
     Dates: start: 20191015
  5. PREDNISONE. [Concomitant]
     Active Substance: PREDNISONE
     Indication: TRACHEOMALACIA
     Dosage: UNK
     Route: 065
     Dates: start: 201911, end: 201911

REACTIONS (9)
  - Cough [Recovered/Resolved]
  - Injection site discolouration [Unknown]
  - Injection site swelling [Recovered/Resolved with Sequelae]
  - Product use in unapproved indication [Unknown]
  - Injection site bruising [Recovered/Resolved]
  - Nasopharyngitis [Not Recovered/Not Resolved]
  - Injection site erythema [Unknown]
  - No adverse event [Unknown]
  - Injection site mass [Unknown]

NARRATIVE: CASE EVENT DATE: 2019
